FAERS Safety Report 4768103-X (Version None)
Quarter: 2005Q3

REPORT INFORMATION
  Report Type: 
  Country: None (occurrence: None)
  Receive Date: 20050912
  Receipt Date: 20050912
  Transmission Date: 20060218
  Serious: Yes (Other)
  Sender: FDA-Public Use
  Company Number: None

PATIENT
  Sex: Female
  Weight: 58.9676 kg

DRUGS (2)
  1. CYMBALTA [Suspect]
     Indication: MENOPAUSAL SYMPTOMS
     Dosage: 60 MG 1 DAILY PO
     Route: 048
     Dates: start: 20050220, end: 20050830
  2. CYMBALTA [Suspect]
     Indication: MENOPAUSAL SYMPTOMS
     Dosage: 30 MG TAPERING PO
     Route: 048
     Dates: start: 20050901, end: 20050910

REACTIONS (26)
  - AMNESIA [None]
  - ANGER [None]
  - ASTHENIA [None]
  - CHEST PAIN [None]
  - CLAUSTROPHOBIA [None]
  - CRYING [None]
  - DEPRESSION [None]
  - DIZZINESS [None]
  - DRUG WITHDRAWAL SYNDROME [None]
  - DYSGRAPHIA [None]
  - DYSSTASIA [None]
  - FATIGUE [None]
  - FEELING ABNORMAL [None]
  - HALLUCINATION, AUDITORY [None]
  - HEADACHE [None]
  - HEART RATE DECREASED [None]
  - HEART RATE INCREASED [None]
  - IMPAIRED DRIVING ABILITY [None]
  - MOOD SWINGS [None]
  - MORBID THOUGHTS [None]
  - NIGHTMARE [None]
  - PHOTOSENSITIVITY REACTION [None]
  - SOMNOLENCE [None]
  - SYNCOPE [None]
  - TREATMENT NONCOMPLIANCE [None]
  - WEIGHT INCREASED [None]
